FAERS Safety Report 9611724 (Version 1)
Quarter: 2013Q4

REPORT INFORMATION
  Report Type: Spontaneous
  Country: US (occurrence: US)
  Receive Date: 20131010
  Receipt Date: 20131010
  Transmission Date: 20140711
  Serious: Yes (Other)
  Sender: FDA-Public Use
  Company Number: US-PFIZER INC-2013286687

PATIENT
  Age: 43 Year
  Sex: Male
  Weight: 86.17 kg

DRUGS (3)
  1. CELEBREX [Suspect]
     Indication: INFLAMMATION
     Dosage: 200 MG, DAILY
     Dates: start: 1999
  2. AMLODIPINE [Concomitant]
     Indication: CARDIAC DISORDER
     Dosage: 5 MG, DAILY
  3. LISINOPRIL [Concomitant]
     Indication: CARDIAC DISORDER
     Dosage: UNK

REACTIONS (2)
  - Diverticulitis [Not Recovered/Not Resolved]
  - Cardiovascular disorder [Unknown]
